FAERS Safety Report 12859803 (Version 2)
Quarter: 2016Q4

REPORT INFORMATION
  Report Type: Spontaneous
  Country: JP (occurrence: JP)
  Receive Date: 20161018
  Receipt Date: 20161128
  Transmission Date: 20170207
  Serious: Yes (Other)
  Sender: FDA-Public Use
  Company Number: PHJP2016JP028989

PATIENT
  Age: 4 Year
  Sex: Female

DRUGS (1)
  1. TEGRETOL [Suspect]
     Active Substance: CARBAMAZEPINE
     Indication: INFANTILE SPASMS
     Dosage: UNK
     Route: 065

REACTIONS (13)
  - Kidney angiomyolipoma [Unknown]
  - Intellectual disability [Unknown]
  - Tonic convulsion [Unknown]
  - Autism [Unknown]
  - Eating disorder [Unknown]
  - Atonic seizures [Unknown]
  - Cardiac neoplasm unspecified [Unknown]
  - Lennox-Gastaut syndrome [Unknown]
  - Drug ineffective [Unknown]
  - Petit mal epilepsy [Unknown]
  - Generalised tonic-clonic seizure [Unknown]
  - Motor developmental delay [Unknown]
  - Hyperkinesia [Unknown]
